FAERS Safety Report 7716280-0 (Version None)
Quarter: 2011Q3

REPORT INFORMATION
  Report Type: 
  Country: None (occurrence: None)
  Receive Date: 20110829
  Receipt Date: 20110818
  Transmission Date: 20111222
  Serious: Yes (Other)
  Sender: FDA-Public Use
  Company Number: CA-JNJFOC-20110809794

PATIENT
  Sex: Female

DRUGS (1)
  1. REMICADE [Suspect]
     Indication: ANKYLOSING SPONDYLITIS
     Route: 042
     Dates: start: 20091001

REACTIONS (4)
  - MYALGIA [None]
  - ARTHRALGIA [None]
  - MENTAL IMPAIRMENT [None]
  - ADDISON'S DISEASE [None]
